FAERS Safety Report 10844993 (Version 1)
Quarter: 2015Q1

REPORT INFORMATION
  Report Type: Spontaneous
  Country: US (occurrence: US)
  Receive Date: 20150220
  Receipt Date: 20150220
  Transmission Date: 20150721
  Serious: Yes (Other)
  Sender: FDA-Public Use
  Company Number: CHPA2015US002520

PATIENT
  Age: 24 Year
  Sex: Female

DRUGS (1)
  1. SCOPALAMINIE HYDROBROMIDE [Suspect]
     Active Substance: SCOPOLAMINE
     Indication: PRODUCT USED FOR UNKNOWN INDICATION
     Dosage: UNK
     Route: 062

REACTIONS (3)
  - Mydriasis [Recovered/Resolved]
  - Respiratory distress [Unknown]
  - Headache [Recovered/Resolved]
